FAERS Safety Report 7797226-6 (Version None)
Quarter: 2011Q4

REPORT INFORMATION
  Report Type: 
  Country: None (occurrence: None)
  Receive Date: 20111005
  Receipt Date: 20110926
  Transmission Date: 20120403
  Serious: Yes (Hospitalization, Other)
  Sender: FDA-Public Use
  Company Number: PHHY2011AU85541

PATIENT
  Sex: Male

DRUGS (5)
  1. CLOZAPINE [Suspect]
     Indication: SCHIZOPHRENIA, PARANOID TYPE
     Dosage: 225 MG,
  2. CLOZAPINE [Suspect]
     Dosage: 6.25 MG,
  3. CLOZAPINE [Suspect]
     Dosage: 12.5 MG,
  4. CLOZAPINE [Suspect]
     Dosage: 400 MG,
  5. CLOZAPINE [Suspect]
     Dosage: 137.5 MG,

REACTIONS (3)
  - CHEST PAIN [None]
  - MYOCARDITIS [None]
  - AGGRESSION [None]
